FAERS Safety Report 13314149 (Version 1)
Quarter: 2017Q1

REPORT INFORMATION
  Report Type: Spontaneous
  Country: US (occurrence: US)
  Receive Date: 20170309
  Receipt Date: 20170309
  Transmission Date: 20170428
  Serious: No
  Sender: FDA-Public Use
  Company Number: US-ELI_LILLY_AND_COMPANY-US201703001044

PATIENT
  Age: 50 Year
  Sex: Female

DRUGS (3)
  1. TRULICITY [Suspect]
     Active Substance: DULAGLUTIDE
     Indication: OFF LABEL USE
     Dosage: 0.75 MG, WEEKLY (1/W)
     Route: 065
     Dates: start: 20161201
  2. TRULICITY [Suspect]
     Active Substance: DULAGLUTIDE
     Indication: OFF LABEL USE
     Dosage: 0.75 MG, WEEKLY (1/W)
     Route: 065
     Dates: start: 20161201
  3. METFORMIN [Concomitant]
     Active Substance: METFORMIN HYDROCHLORIDE
     Dosage: UNK, UNKNOWN
     Route: 065

REACTIONS (5)
  - Decreased appetite [Recovered/Resolved]
  - Nausea [Recovered/Resolved]
  - Dyspepsia [Not Recovered/Not Resolved]
  - Off label use [Unknown]
  - Incorrect dose administered [Recovered/Resolved]

NARRATIVE: CASE EVENT DATE: 201612
